FAERS Safety Report 4596163-8 (Version None)
Quarter: 2005Q1

REPORT INFORMATION
  Report Type: 
  Country: None (occurrence: None)
  Receive Date: 20050302
  Receipt Date: 20050221
  Transmission Date: 20050727
  Serious: Yes (Other)
  Sender: FDA-Public Use
  Company Number: GB-ROCHE-396245

PATIENT
  Age: 80 Year
  Sex: Female
  Weight: 30.8 kg

DRUGS (10)
  1. TAMIFLU [Suspect]
     Indication: INFLUENZA
     Route: 048
     Dates: start: 20050126, end: 20050131
  2. FERROUS SULFATE TAB [Concomitant]
  3. ZOTON [Concomitant]
  4. PAROXETINE [Concomitant]
  5. SENNA [Concomitant]
     Dosage: DAILY DOSING REGIMEN: 7.5 MG, 1-2 NOCTE.
  6. DETRUSITOL [Concomitant]
  7. EPILIM [Concomitant]
  8. ZOPICLONE [Concomitant]
     Dosage: DAILY DOSING REGIMEN: 7.5 MG NOCTE
  9. ENLIVE [Concomitant]
  10. ARTIFICIAL SALIVA [Concomitant]
     Dosage: DRUG NAME REPORTED AS GLANDOSARE LEMON.

REACTIONS (3)
  - PROTEINURIA [None]
  - RENAL DISORDER [None]
  - URINE ODOUR ABNORMAL [None]
